FAERS Safety Report 9131195 (Version 2)
Quarter: 2013Q1

REPORT INFORMATION
  Report Type: Spontaneous
  Country: IT (occurrence: IT)
  Receive Date: 20130301
  Receipt Date: 20130319
  Transmission Date: 20140127
  Serious: Yes (Hospitalization)
  Sender: FDA-Public Use
  Company Number: PHHY2013IT019820

PATIENT
  Age: 58 Year
  Sex: Male

DRUGS (3)
  1. TEGRETOL [Suspect]
     Indication: EPILEPSY
     Dosage: 400 MG, DAILY
     Route: 048
     Dates: start: 20120801, end: 20121220
  2. RISPERIDONE ACTAVIS [Concomitant]
     Indication: MANIA
     Dosage: 6 MG, DAILY
     Route: 048
     Dates: start: 20120101, end: 20121220
  3. TOPAMAX [Concomitant]
     Indication: EPILEPSY
     Dosage: 100 MG, DAILY
     Route: 048
     Dates: start: 20120801, end: 20121220

REACTIONS (3)
  - Rhabdomyolysis [Not Recovered/Not Resolved]
  - Drug abuse [Not Recovered/Not Resolved]
  - Alcohol abuse [Not Recovered/Not Resolved]
